FAERS Safety Report 8523971 (Version 15)
Quarter: 2014Q2

REPORT INFORMATION
  Report Type: Report from Study
  Country: GB (occurrence: GB)
  Receive Date: 20120420
  Receipt Date: 20140418
  Transmission Date: 20141212
  Serious: Yes (Life-Threatening, Hospitalization, Disabling, Other)
  Sender: FDA-Public Use
  Company Number: GB-ROCHE-1060104

PATIENT
  Age: 72 Year
  Sex: Male
  Weight: 90 kg

DRUGS (12)
  1. VEMURAFENIB [Suspect]
     Indication: METASTATIC MALIGNANT MELANOMA
     Dosage: DATE OF LAST DOSE PRIOR TO THE SAE : 12/APR/2012, 06/JUN/2012.
     Route: 048
     Dates: start: 20120214, end: 20120612
  2. VEMURAFENIB [Suspect]
     Route: 048
     Dates: start: 20120619, end: 20120820
  3. VEMURAFENIB [Suspect]
     Route: 048
     Dates: start: 20120828
  4. CLEXANE [Suspect]
     Indication: PULMONARY EMBOLISM
     Route: 065
     Dates: start: 20120412
  5. CLEXANE [Suspect]
     Route: 065
     Dates: start: 20120413, end: 20130414
  6. FELODIPINE [Concomitant]
     Route: 065
     Dates: start: 2004
  7. PERINDOPRIL [Concomitant]
     Route: 065
     Dates: start: 2004
  8. VIAGRA [Concomitant]
     Route: 065
     Dates: start: 201001
  9. LORATADIN [Concomitant]
     Route: 065
     Dates: start: 2010
  10. PREDNISOLONE [Concomitant]
     Route: 065
     Dates: start: 20120314
  11. BETNOVATE [Concomitant]
     Route: 065
     Dates: start: 20100314
  12. SYNALAR GEL [Concomitant]
     Route: 061
     Dates: start: 20120314

REACTIONS (4)
  - Pulmonary embolism [Recovered/Resolved]
  - Cerebral haemorrhage [Recovered/Resolved with Sequelae]
  - Anal abscess [Recovered/Resolved]
  - Keratoacanthoma [Recovered/Resolved]
